FAERS Safety Report 4740469-6 (Version None)
Quarter: 2005Q3

REPORT INFORMATION
  Report Type: 
  Country: None (occurrence: None)
  Receive Date: 20050809
  Receipt Date: 20050725
  Transmission Date: 20060218
  Serious: Yes (Hospitalization)
  Sender: FDA-Public Use
  Company Number: 863#3#2005-00010

PATIENT
  Age: 77 Year
  Sex: Male

DRUGS (6)
  1. IDROLAX (MACROGOL) [Suspect]
     Indication: CONSTIPATION
     Dosage: ORAL
     Route: 048
     Dates: start: 20050608, end: 20050623
  2. CANDESARTIN CILEXTIL (CANDESARTAN CILEXETIL) [Suspect]
     Indication: HYPERTENSION
     Dosage: (4 MG 1 IN 1 DAY (S))
     Dates: start: 20050622, end: 20050623
  3. CLOPIDOGREL BISULFATE [Suspect]
     Dosage: (75 MG 1 IN 1 DAY (S))
     Dates: start: 20030101, end: 20050623
  4. METOCLOPRAMIDE [Suspect]
     Indication: NAUSEA
     Dosage: ORAL
     Route: 048
     Dates: start: 20050617, end: 20050623
  5. BISOPROLOL FUMERATE (BISOPROLOL FUMARATE) [Concomitant]
  6. FUROSEMIDE [Concomitant]

REACTIONS (2)
  - CARDIAC FAILURE [None]
  - HEPATITIS [None]
